FAERS Safety Report 6844817-2 (Version None)
Quarter: 2010Q3

REPORT INFORMATION
  Report Type: 
  Country: None (occurrence: None)
  Receive Date: 20100713
  Receipt Date: 20100210
  Transmission Date: 20110219
  Serious: Yes (Hospitalization)
  Sender: FDA-Public Use
  Company Number: 1-18212807

PATIENT
  Age: 63 Year
  Sex: Male
  Weight: 88.4514 kg

DRUGS (8)
  1. QUALAQUIN [Suspect]
     Indication: MUSCLE SPASMS
     Dosage: ORAL
     Route: 048
     Dates: start: 20080505
  2. OXYCODONE [Concomitant]
  3. TRAMADOL HYDROCHLORIDE [Concomitant]
  4. DARVOCET [Concomitant]
  5. SIMVASTATIN [Concomitant]
  6. EFFEXOR XR [Concomitant]
  7. AMBIEN [Concomitant]
  8. MIRAPEX [Concomitant]

REACTIONS (9)
  - CONSTIPATION [None]
  - DEPRESSION [None]
  - HAEMODIALYSIS [None]
  - HAEMOLYTIC URAEMIC SYNDROME [None]
  - NAUSEA [None]
  - PAIN [None]
  - RENAL FAILURE ACUTE [None]
  - RENAL TUBULAR NECROSIS [None]
  - THROMBOTIC THROMBOCYTOPENIC PURPURA [None]
